FAERS Safety Report 23247084 (Version 1)
Quarter: 2023Q4

REPORT INFORMATION
  Report Type: Report from Study
  Country: US (occurrence: US)
  Receive Date: 20231130
  Receipt Date: 20231130
  Transmission Date: 20240110
  Serious: Yes (Other)
  Sender: FDA-Public Use
  Company Number: US-ABBVIE-5519830

PATIENT
  Sex: Female

DRUGS (1)
  1. VENCLEXTA [Suspect]
     Active Substance: VENETOCLAX
     Indication: Myeloproliferative neoplasm
     Dosage: TAKE 4 TABLET(S) BY MOUTH ONCE A DAY
     Route: 048

REACTIONS (2)
  - Myeloproliferative neoplasm [Unknown]
  - Off label use [Unknown]
